FAERS Safety Report 18386209 (Version 1)
Quarter: 2020Q4

REPORT INFORMATION
  Report Type: Spontaneous
  Country: CA (occurrence: CA)
  Receive Date: 20201015
  Receipt Date: 20201015
  Transmission Date: 20210114
  Serious: Yes (Life-Threatening, Hospitalization, Other)
  Sender: FDA-Public Use
  Company Number: CA-PFIZER INC-2020398631

PATIENT
  Age: 56 Year
  Sex: Female
  Weight: 69 kg

DRUGS (19)
  1. DIFLUCAN [Interacting]
     Active Substance: FLUCONAZOLE
     Dosage: 200 MG, 2X/DAY
     Route: 048
  2. CYCLOSPORINE. [Interacting]
     Active Substance: CYCLOSPORINE
     Indication: LUNG TRANSPLANT
     Dosage: 200 MG, 2X/DAY
     Route: 048
  3. CYCLOSPORINE. [Interacting]
     Active Substance: CYCLOSPORINE
     Dosage: 125 MG, 1X/DAY
     Route: 048
  4. AMLODIPINE [Concomitant]
     Active Substance: AMLODIPINE BESYLATE
     Dosage: UNK
  5. PREDNISONE. [Concomitant]
     Active Substance: PREDNISONE
     Dosage: UNK
  6. BACTRIM [Concomitant]
     Active Substance: SULFAMETHOXAZOLE\TRIMETHOPRIM
     Dosage: UNK
  7. DIFLUCAN [Suspect]
     Active Substance: FLUCONAZOLE
     Indication: OESOPHAGEAL CANDIDIASIS
     Dosage: 200 MG, 2X/DAY
     Route: 048
  8. FLUOXETINE [Concomitant]
     Active Substance: FLUOXETINE HYDROCHLORIDE
     Dosage: UNK
  9. CYCLOSPORINE. [Interacting]
     Active Substance: CYCLOSPORINE
     Indication: IMMUNOSUPPRESSANT DRUG THERAPY
     Dosage: 275 MG, 1X/DAY
     Route: 048
  10. CYCLOSPORINE. [Interacting]
     Active Substance: CYCLOSPORINE
     Dosage: 100 MG, 1X/DAY
     Route: 048
  11. CYCLOSPORINE. [Interacting]
     Active Substance: CYCLOSPORINE
     Dosage: 225 MG, 2X/DAY
     Route: 048
  12. CYCLOSPORINE. [Interacting]
     Active Substance: CYCLOSPORINE
     Dosage: UNK, 1X/DAY
     Route: 048
  13. FAMOTIDINE. [Concomitant]
     Active Substance: FAMOTIDINE
     Dosage: UNK
  14. METOPROLOL. [Concomitant]
     Active Substance: METOPROLOL
     Dosage: UNK
  15. VITAMIN D [VITAMIN D NOS] [Concomitant]
     Active Substance: VITAMIN D NOS
     Dosage: UNK
  16. FOSAMAX [Concomitant]
     Active Substance: ALENDRONATE SODIUM
     Dosage: UNK
  17. MYCOPHENOLATE MOFETIL. [Concomitant]
     Active Substance: MYCOPHENOLATE MOFETIL
     Dosage: UNK
  18. LASIX [Concomitant]
     Active Substance: FUROSEMIDE
     Dosage: UNK
  19. MAGNESIUM OXIDE. [Concomitant]
     Active Substance: MAGNESIUM OXIDE
     Dosage: UNK

REACTIONS (9)
  - Acute kidney injury [Unknown]
  - Cytomegalovirus viraemia [Unknown]
  - Oesophageal candidiasis [Unknown]
  - Drug interaction [Unknown]
  - Acute respiratory distress syndrome [Unknown]
  - Aphasia [Unknown]
  - Dehydration [Unknown]
  - Pneumonitis [Unknown]
  - Posterior reversible encephalopathy syndrome [Unknown]
